FAERS Safety Report 8585737-5 (Version None)
Quarter: 2012Q3

REPORT INFORMATION
  Report Type: 
  Country: None (occurrence: None)
  Receive Date: 20120810
  Receipt Date: 20120806
  Transmission Date: 20120928
  Serious: Yes (Death, Life-Threatening)
  Sender: FDA-Public Use
  Company Number: DE-CUBIST-2012S1000614

PATIENT
  Age: 69 Year
  Sex: Female
  Weight: 93 kg

DRUGS (4)
  1. CEFTAZIDIME [Concomitant]
     Indication: PRODUCT USED FOR UNKNOWN INDICATION
     Dates: start: 20120119, end: 20120124
  2. CUBICIN [Suspect]
     Indication: BACTERIAL INFECTION
     Route: 042
     Dates: start: 20120119, end: 20120124
  3. CANCIDAS [Concomitant]
     Indication: PRODUCT USED FOR UNKNOWN INDICATION
     Dates: start: 20120119, end: 20120124
  4. GARAMYCIN [Concomitant]
     Indication: PRODUCT USED FOR UNKNOWN INDICATION
     Dates: start: 20120119, end: 20120123

REACTIONS (7)
  - SMALL INTESTINAL HAEMORRHAGE [None]
  - DISSEMINATED INTRAVASCULAR COAGULATION [None]
  - PNEUMOTHORAX [None]
  - HAEMOGLOBIN DECREASED [None]
  - HAEMOTHORAX [None]
  - SHOCK HAEMORRHAGIC [None]
  - SUBCUTANEOUS HAEMATOMA [None]
